FAERS Safety Report 15611912 (Version 5)
Quarter: 2019Q4

REPORT INFORMATION
  Report Type: Spontaneous
  Country: US (occurrence: US)
  Receive Date: 20181113
  Receipt Date: 20191210
  Transmission Date: 20200122
  Serious: No
  Sender: FDA-Public Use
  Company Number: US-SA-2018SA309294

PATIENT
  Age: 47 Year
  Sex: Male

DRUGS (1)
  1. KEVZARA [Suspect]
     Active Substance: SARILUMAB
     Indication: RHEUMATOID ARTHRITIS
     Dosage: 150 MG, QOW
     Route: 058
     Dates: start: 201807

REACTIONS (7)
  - Nasopharyngitis [Unknown]
  - Injection site swelling [Unknown]
  - Eye infection [Unknown]
  - Injection site erythema [Unknown]
  - Injection site irritation [Unknown]
  - Sinusitis [Unknown]
  - Product dose omission [Unknown]

NARRATIVE: CASE EVENT DATE: 2018
